FAERS Safety Report 7452754-8 (Version None)
Quarter: 2011Q2

REPORT INFORMATION
  Report Type: 
  Country: None (occurrence: None)
  Receive Date: 20110502
  Receipt Date: 20101109
  Transmission Date: 20111010
  Serious: No
  Sender: FDA-Public Use
  Company Number: US-ASTRAZENECA-2010SE53112

PATIENT
  Age: 57 Year
  Sex: Female
  Weight: 65.8 kg

DRUGS (9)
  1. CRESTOR [Suspect]
     Indication: HYPERCHOLESTEROLAEMIA
     Route: 048
     Dates: start: 20070101
  2. MAGNESIUM OXIDE [Concomitant]
     Route: 048
  3. NEURONTIN [Suspect]
     Indication: TRIGEMINAL NEURALGIA
     Route: 048
  4. COREG [Concomitant]
     Indication: CARDIAC DISORDER
     Route: 048
  5. RANITIDINE [Concomitant]
     Indication: DYSPEPSIA
     Route: 048
  6. NEXIUM [Suspect]
     Indication: DYSPEPSIA
     Route: 048
     Dates: start: 20090101
  7. LISINOPRIL [Concomitant]
     Indication: HYPERTENSION
     Route: 048
  8. XANAX [Concomitant]
     Indication: PANIC ATTACK
     Route: 048
  9. PLAVIX [Concomitant]
     Indication: CARDIAC DISORDER
     Route: 048

REACTIONS (5)
  - DRUG DOSE OMISSION [None]
  - DYSPNOEA [None]
  - TRIGEMINAL NEURALGIA [None]
  - DYSPEPSIA [None]
  - OSTEOPOROSIS [None]
